FAERS Safety Report 16685109 (Version 13)
Quarter: 2020Q2

REPORT INFORMATION
  Report Type: Spontaneous
  Country: US (occurrence: US)
  Receive Date: 20190808
  Receipt Date: 20200623
  Transmission Date: 20200713
  Serious: Yes (Hospitalization)
  Sender: FDA-Public Use
  Company Number: US-ACTELION-A-US2019-193762

PATIENT
  Age: 68 Year
  Sex: Female
  Weight: 103.4 kg

DRUGS (8)
  1. UPTRAVI [Suspect]
     Active Substance: SELEXIPAG
     Dosage: 800 MCG, BID
     Route: 048
     Dates: start: 20190802
  2. UPTRAVI [Suspect]
     Active Substance: SELEXIPAG
     Dosage: 400 MCG, BID
     Route: 048
  3. OPSUMIT [Suspect]
     Active Substance: MACITENTAN
     Indication: PULMONARY ARTERIAL HYPERTENSION
     Dosage: 10 MG, QD
     Route: 048
  4. CINACALCET. [Concomitant]
     Active Substance: CINACALCET
     Dosage: UNK
     Dates: start: 20200610
  5. UPTRAVI [Suspect]
     Active Substance: SELEXIPAG
     Indication: PULMONARY ARTERIAL HYPERTENSION
     Dosage: 200 MCG, BID
     Route: 048
     Dates: start: 20200609
  6. ELIQUIS [Concomitant]
     Active Substance: APIXABAN
  7. UPTRAVI [Suspect]
     Active Substance: SELEXIPAG
     Dosage: 600 MCG, BID
     Route: 048
     Dates: start: 20190726
  8. SILDENAFIL CITRATE. [Concomitant]
     Active Substance: SILDENAFIL CITRATE

REACTIONS (18)
  - Myalgia [Unknown]
  - Intentional dose omission [Unknown]
  - Nausea [Unknown]
  - Fatigue [Unknown]
  - Pyrexia [Unknown]
  - Peripheral swelling [Unknown]
  - Abdominal distension [Unknown]
  - Chest discomfort [Unknown]
  - Pain in jaw [Unknown]
  - Hospitalisation [Unknown]
  - Headache [Unknown]
  - Dyspnoea exertional [Unknown]
  - Palpitations [Unknown]
  - Arthralgia [Unknown]
  - Malaise [Unknown]
  - Oxygen saturation decreased [Unknown]
  - Heart rate increased [Unknown]
  - Musculoskeletal pain [Unknown]

NARRATIVE: CASE EVENT DATE: 201908
